FAERS Safety Report 8240765-4 (Version None)
Quarter: 2012Q1

REPORT INFORMATION
  Report Type: 
  Country: None (occurrence: None)
  Receive Date: 20120314
  Receipt Date: 20120209
  Transmission Date: 20120608
  Serious: Yes (Other)
  Sender: FDA-Public Use
  Company Number: PHEH2011US01955

PATIENT
  Age: 35 Year
  Sex: Female

DRUGS (2)
  1. EXTAVIA [Suspect]
     Indication: PRIMARY PROGRESSIVE MULTIPLE SCLEROSIS
     Dosage: 0.25 MG, QOD, SUBCUTANEOUS 1 ML, QOD, SUBCUTANEOUS
     Route: 058
     Dates: start: 20110805
  2. EXTAVIA [Suspect]
     Indication: PRIMARY PROGRESSIVE MULTIPLE SCLEROSIS
     Dosage: 0.25 MG, QOD, SUBCUTANEOUS 1 ML, QOD, SUBCUTANEOUS
     Route: 058
     Dates: start: 20111219

REACTIONS (9)
  - FATIGUE [None]
  - NAUSEA [None]
  - HEADACHE [None]
  - INFLUENZA LIKE ILLNESS [None]
  - HEPATIC ENZYME INCREASED [None]
  - HYPOAESTHESIA [None]
  - BACK PAIN [None]
  - PAIN [None]
  - MALAISE [None]
